FAERS Safety Report 11509230 (Version 1)
Quarter: 2015Q3

REPORT INFORMATION
  Report Type: Spontaneous
  Country: US (occurrence: US)
  Receive Date: 20150903
  Receipt Date: 20150903
  Transmission Date: 20151125
  Serious: No
  Sender: FDA-Public Use
  Company Number: US-ELI_LILLY_AND_COMPANY-US201003004758

PATIENT
  Age: 55 Year
  Sex: Female

DRUGS (19)
  1. BAYER ASPIRIN [Concomitant]
     Active Substance: ASPIRIN
  2. MINERAL SUPPLEMENTS [Concomitant]
     Active Substance: UNSPECIFIED INGREDIENT
     Dosage: UNK, DAILY (1/D)
  3. HUMALOG [Suspect]
     Active Substance: INSULIN LISPRO
     Dosage: 3 U, UNK
     Route: 058
     Dates: start: 20100310, end: 20100310
  4. FOLIC ACID. [Concomitant]
     Active Substance: FOLIC ACID
     Dosage: UNK, EACH MORNING
  5. DIOVAN [Concomitant]
     Active Substance: VALSARTAN
     Dosage: UNK, EACH MORNING
  6. HYDROCHLOROTHIAZIDE. [Concomitant]
     Active Substance: HYDROCHLOROTHIAZIDE
     Dosage: UNK, EACH MORNING
  7. DITROPAN XL [Concomitant]
     Active Substance: OXYBUTYNIN CHLORIDE
     Dosage: UNK, EACH MORNING
  8. PROZAC [Concomitant]
     Active Substance: FLUOXETINE HYDROCHLORIDE
     Dosage: UNK, DAILY (1/D)
  9. LEVSIN [Concomitant]
     Active Substance: HYOSCYAMINE SULFATE
     Dosage: UNK, 2/D
  10. TOPROL XL [Concomitant]
     Active Substance: METOPROLOL SUCCINATE
     Dosage: UNK, EACH EVENING
  11. VITAMIN B [Concomitant]
     Active Substance: VITAMIN B
     Dosage: UNK, QOD
  12. LANTUS [Concomitant]
     Active Substance: INSULIN GLARGINE
  13. LANOXIN [Concomitant]
     Active Substance: DIGOXIN
     Dosage: UNK, EACH MORNING
  14. LIPITOR [Concomitant]
     Active Substance: ATORVASTATIN CALCIUM
     Dosage: UNK, EACH EVENING
  15. DOXAZOSIN MESYLATE. [Concomitant]
     Active Substance: DOXAZOSIN MESYLATE
     Dosage: UNK, EACH EVENING
  16. DILTIAZEM HYDROCHLORIDE EXTENDED RELEASE [Concomitant]
     Active Substance: DILTIAZEM HYDROCHLORIDE
     Dosage: UNK, EACH MORNING
  17. GLUCOPHAGE [Concomitant]
     Active Substance: METFORMIN HYDROCHLORIDE
     Dosage: UNK, 3/D
  18. FIBERCON [Concomitant]
     Active Substance: CALCIUM POLYCARBOPHIL
     Dosage: UNK, DAILY (1/D)
  19. MULTIVITAMIN [Concomitant]
     Active Substance: VITAMINS

REACTIONS (2)
  - Injection site reaction [Recovered/Resolved]
  - Peripheral swelling [Recovered/Resolved]

NARRATIVE: CASE EVENT DATE: 20100310
